FAERS Safety Report 4422080-X (Version None)
Quarter: 2004Q3

REPORT INFORMATION
  Report Type: 
  Country: None (occurrence: None)
  Receive Date: 20040806
  Receipt Date: 20040724
  Transmission Date: 20050211
  Serious: Yes (Other)
  Sender: FDA-Public Use
  Company Number: 2004051416

PATIENT
  Sex: Male

DRUGS (6)
  1. NEURONTIN [Suspect]
     Indication: PAIN
  2. ALPRAZOLAM [Concomitant]
  3. OXYCODONE HCL [Concomitant]
  4. MEPERIDINE HYDROCHLORIDE [Concomitant]
  5. METHADONE HCL [Concomitant]
  6. ESOMEPRAZOLE (ESOMEPRAZOLE) [Concomitant]

REACTIONS (1)
  - INSOMNIA [None]
